FAERS Safety Report 20894680 (Version 1)
Quarter: 2022Q2

REPORT INFORMATION
  Report Type: Spontaneous
  Country: US (occurrence: US)
  Receive Date: 20220531
  Receipt Date: 20220531
  Transmission Date: 20220721
  Serious: Yes (Other)
  Sender: FDA-Public Use
  Company Number: US-PFIZER INC-202200755879

PATIENT
  Age: 19 Year
  Sex: Female

DRUGS (4)
  1. PENICILLIN G PROCAINE [Suspect]
     Active Substance: PENICILLIN G PROCAINE
     Indication: Urinary tract infection
     Dosage: 4.8 MILLION UNITS
  2. PENICILLIN G PROCAINE [Suspect]
     Active Substance: PENICILLIN G PROCAINE
     Indication: Trichomoniasis
     Dosage: 2.4 MILLION UNITS
  3. PENICILLIN G PROCAINE [Suspect]
     Active Substance: PENICILLIN G PROCAINE
     Indication: Pelvic inflammatory disease
  4. PROBENECID [Concomitant]
     Active Substance: PROBENECID
     Dosage: 1 G, 2X/DAY

REACTIONS (6)
  - Acute psychosis [Unknown]
  - Dizziness [Recovered/Resolved]
  - Dysgeusia [Recovered/Resolved]
  - Tinnitus [Recovered/Resolved]
  - Hypoaesthesia [Recovered/Resolved]
  - Dyspnoea [Recovered/Resolved]
